FAERS Safety Report 19091003 (Version 1)
Quarter: 2021Q2

REPORT INFORMATION
  Report Type: Spontaneous
  Country: US (occurrence: US)
  Receive Date: 20210405
  Receipt Date: 20210405
  Transmission Date: 20210717
  Serious: No
  Sender: FDA-Public Use
  Company Number: US-DRREDDYS-USA/USA/21/0133156

PATIENT
  Age: 16 Year
  Sex: Male

DRUGS (1)
  1. ZENATANE [Suspect]
     Active Substance: ISOTRETINOIN
     Indication: PRODUCT USED FOR UNKNOWN INDICATION
     Dosage: RMS: ISSUE DATE 11/11/2020 8:55:20 PM, 12/11/2020 4:45:20 PM, 8/1/2021 6:37:30 PM.
     Route: 048

REACTIONS (1)
  - Therapy cessation [Unknown]
